FAERS Safety Report 10419918 (Version 1)
Quarter: 2014Q3

REPORT INFORMATION
  Report Type: Spontaneous
  Country: US (occurrence: None)
  Receive Date: 20140828
  Receipt Date: 20140828
  Transmission Date: 20150326
  Serious: Yes (Hospitalization)
  Sender: FDA-Public Use
  Company Number: 2014RT000097

PATIENT
  Age: 29 Year
  Sex: Female

DRUGS (2)
  1. PROCYSBI DELAYED-RELEASE [Suspect]
     Active Substance: CYSTEAMINE BITARTRATE
     Indication: AMINO ACID METABOLISM DISORDER
     Dates: start: 20131115
  2. CYSTARAN (MERCAPTAMINE HYDROCHLORIDE) [Concomitant]

REACTIONS (1)
  - Hospitalisation [None]
